FAERS Safety Report 10953382 (Version 3)
Quarter: 2015Q2

REPORT INFORMATION
  Report Type: Spontaneous
  Country: US (occurrence: US)
  Receive Date: 20150325
  Receipt Date: 20150609
  Transmission Date: 20150821
  Serious: Yes (Hospitalization)
  Sender: FDA-Public Use
  Company Number: US-JNJFOC-20150309250

PATIENT
  Sex: Male
  Weight: 84.37 kg

DRUGS (1)
  1. RISPERDAL [Suspect]
     Active Substance: RISPERIDONE
     Indication: ATTENTION DEFICIT/HYPERACTIVITY DISORDER
     Route: 048
     Dates: start: 2010, end: 2013

REACTIONS (9)
  - Imprisonment [Unknown]
  - Product use issue [Not Recovered/Not Resolved]
  - Drug abuse [Unknown]
  - Incorrect route of drug administration [Unknown]
  - Gynaecomastia [Not Recovered/Not Resolved]
  - Sexually inappropriate behaviour [Unknown]
  - Weight increased [Unknown]
  - Schizophrenia, paranoid type [Not Recovered/Not Resolved]
  - Insomnia [Not Recovered/Not Resolved]

NARRATIVE: CASE EVENT DATE: 2010
